FAERS Safety Report 14259060 (Version 3)
Quarter: 2018Q2

REPORT INFORMATION
  Report Type: Not Available
  Country: US (occurrence: US)
  Receive Date: 20171207
  Receipt Date: 20180424
  Transmission Date: 20180711
  Serious: No
  Sender: FDA-Public Use
  Company Number: US-NEUROCRINE BIOSCIENCES INC.-2017NBI01697

PATIENT
  Sex: Female

DRUGS (23)
  1. ACIDOPHILUS [Concomitant]
     Active Substance: LACTOBACILLUS ACIDOPHILUS
  2. INGREZZA [Suspect]
     Active Substance: VALBENAZINE
     Indication: TARDIVE DYSKINESIA
     Route: 048
     Dates: start: 20171018, end: 20171025
  3. AZITHROMYCIN EYE OINTMENT [Concomitant]
  4. INGREZZA [Suspect]
     Active Substance: VALBENAZINE
     Route: 048
     Dates: start: 20171026, end: 20180215
  5. FOSAMAX [Concomitant]
     Active Substance: ALENDRONATE SODIUM
  6. ANTACID [Concomitant]
     Active Substance: ALUMINUM HYDROXIDE\CALCIUM CARBONATE\DIMETHICONE\MAGNESIUM HYDROXIDE
  7. CREON [Concomitant]
     Active Substance: PANCRELIPASE AMYLASE\PANCRELIPASE LIPASE\PANCRELIPASE PROTEASE
  8. BUSPIRONE [Concomitant]
     Active Substance: BUSPIRONE HYDROCHLORIDE
  9. LISINOPRIL. [Concomitant]
     Active Substance: LISINOPRIL
  10. HYDROCODONE [Concomitant]
     Active Substance: HYDROCODONE
  11. STOOL SOFTENER (DOCUSATE) [Concomitant]
     Active Substance: DOCUSATE
  12. ESTRACE [Concomitant]
     Active Substance: ESTRADIOL
  13. LIDOCAINE. [Concomitant]
     Active Substance: LIDOCAINE
  14. LORAZEPAM. [Concomitant]
     Active Substance: LORAZEPAM
  15. ALLOPURINOL. [Concomitant]
     Active Substance: ALLOPURINOL
  16. ASPIRIN 81 [Concomitant]
     Active Substance: ASPIRIN
  17. FLEXERIL [Concomitant]
     Active Substance: CYCLOBENZAPRINE HYDROCHLORIDE
  18. CYMBALTA [Concomitant]
     Active Substance: DULOXETINE HYDROCHLORIDE
  19. PEPCID [Concomitant]
     Active Substance: FAMOTIDINE
  20. ATORVASTATIN [Concomitant]
     Active Substance: ATORVASTATIN
  21. VITAMIN B12 [Concomitant]
     Active Substance: CYANOCOBALAMIN
  22. SYNTHROID [Concomitant]
     Active Substance: LEVOTHYROXINE SODIUM
  23. MAGNESIUM OXIDE. [Concomitant]
     Active Substance: MAGNESIUM OXIDE

REACTIONS (3)
  - Somnolence [Recovered/Resolved]
  - Fatigue [Recovered/Resolved]
  - Mental impairment [Recovered/Resolved]
